FAERS Safety Report 18129885 (Version 1)
Quarter: 2020Q3

REPORT INFORMATION
  Report Type: Spontaneous
  Country: US (occurrence: US)
  Receive Date: 20200807
  Receipt Date: 20200807
  Transmission Date: 20201103
  Serious: Yes (Hospitalization)
  Sender: FDA-Public Use
  Company Number: None

PATIENT
  Age: 60 Year
  Sex: Female

DRUGS (11)
  1. BUSPIRONE [Concomitant]
     Active Substance: BUSPIRONE HYDROCHLORIDE
  2. DULOXETINE. [Concomitant]
     Active Substance: DULOXETINE
  3. SUMATRIPTAN. [Concomitant]
     Active Substance: SUMATRIPTAN
  4. PREDISONE [Concomitant]
     Active Substance: PREDNISONE
  5. HUMIRA [Suspect]
     Active Substance: ADALIMUMAB
     Indication: PSORIATIC ARTHROPATHY
     Dosage: ?  OTHER FREQUENCY:Q2WK;?
     Route: 058
     Dates: start: 20200121
  6. LEVOTHYROXIN [Concomitant]
     Active Substance: LEVOTHYROXINE
  7. METHYLPRED [Concomitant]
     Active Substance: METHYLPREDNISOLONE
  8. TRAZODONE [Concomitant]
     Active Substance: TRAZODONE HYDROCHLORIDE
  9. SULFASALAZINE DELAYED?RELEASE [Concomitant]
     Active Substance: SULFASALAZINE
  10. AMOX/K CLAV [Concomitant]
     Active Substance: AMOXICILLIN\CLAVULANATE POTASSIUM
  11. FLUTICASONE. [Concomitant]
     Active Substance: FLUTICASONE

REACTIONS (1)
  - Shoulder operation [None]

NARRATIVE: CASE EVENT DATE: 20200807
